FAERS Safety Report 9592892 (Version 1)
Quarter: 2013Q4

REPORT INFORMATION
  Report Type: Report from Study
  Country: BR (occurrence: BR)
  Receive Date: 20131004
  Receipt Date: 20131004
  Transmission Date: 20140711
  Serious: Yes (Other)
  Sender: FDA-Public Use
  Company Number: PHHY2013BR110048

PATIENT
  Age: 71 Year
  Sex: Male

DRUGS (7)
  1. INDACATEROL [Suspect]
     Indication: CHRONIC OBSTRUCTIVE PULMONARY DISEASE
     Dosage: 300 UG, UNK
     Dates: start: 201104
  2. FLUTICASONE [Concomitant]
     Indication: CHRONIC OBSTRUCTIVE PULMONARY DISEASE
     Dosage: UNK UKN, UNK
  3. TIOTROPIUM [Concomitant]
     Indication: CHRONIC OBSTRUCTIVE PULMONARY DISEASE
     Dosage: UNK UKN, UNK
  4. AMLODIPINE [Concomitant]
     Dosage: UNK UKN, UNK
  5. VALSARTAN [Concomitant]
     Dosage: UNK UKN, UNK
  6. PHENYTOIN [Concomitant]
     Dosage: UNK UKN, UNK
  7. PHENOBARBITAL [Concomitant]
     Dosage: UNK UKN, UNK

REACTIONS (2)
  - Infective exacerbation of chronic obstructive airways disease [Unknown]
  - Emphysema [Unknown]
